FAERS Safety Report 15778454 (Version 4)
Quarter: 2020Q1

REPORT INFORMATION
  Report Type: Spontaneous
  Country: FR (occurrence: FR)
  Receive Date: 20181231
  Receipt Date: 20200121
  Transmission Date: 20200409
  Serious: Yes (Other)
  Sender: FDA-Public Use
  Company Number: FR-ELI_LILLY_AND_COMPANY-FR201812011557

PATIENT
  Age: 74 Year
  Sex: Female

DRUGS (4)
  1. FORSTEO 250UG/ML [Suspect]
     Active Substance: TERIPARATIDE
     Indication: OSTEOPOROSIS
     Dosage: UNK, UNKNOWN
     Route: 065
     Dates: start: 201808
  2. COZAAR [Concomitant]
     Active Substance: LOSARTAN POTASSIUM
     Indication: PRODUCT USED FOR UNKNOWN INDICATION
     Dosage: 0.5 DF, UNKNOWN
  3. FORSTEO 250UG/ML [Suspect]
     Active Substance: TERIPARATIDE
     Dosage: UNK
     Route: 065
  4. FORSTEO 250UG/ML [Suspect]
     Active Substance: TERIPARATIDE
     Dosage: UNK, UNKNOWN
     Route: 065

REACTIONS (30)
  - Blindness unilateral [Unknown]
  - Weight increased [Unknown]
  - Pain in extremity [Unknown]
  - Balance disorder [Unknown]
  - Asthenia [Unknown]
  - Waist circumference increased [Unknown]
  - Nausea [Unknown]
  - Blood pressure decreased [Unknown]
  - Hyperhidrosis [Unknown]
  - Decreased appetite [Unknown]
  - Periodontitis [Unknown]
  - Muscle spasms [Unknown]
  - Skin odour abnormal [Unknown]
  - Urinary incontinence [Unknown]
  - Dyspnoea [Unknown]
  - Discomfort [Unknown]
  - Product dose omission [Unknown]
  - Mucosal dryness [Unknown]
  - Dry eye [Unknown]
  - Vagus nerve disorder [Recovered/Resolved]
  - Fatigue [Unknown]
  - Nasopharyngitis [Unknown]
  - Malaise [Unknown]
  - Liver disorder [Unknown]
  - Mobility decreased [Unknown]
  - Bronchitis [Recovering/Resolving]
  - Urine odour abnormal [Unknown]
  - Vision blurred [Unknown]
  - Haemorrhoids [Recovering/Resolving]
  - Depression [Unknown]

NARRATIVE: CASE EVENT DATE: 201808
